FAERS Safety Report 8445049-7 (Version None)
Quarter: 2012Q2

REPORT INFORMATION
  Report Type: 
  Country: None (occurrence: None)
  Receive Date: 20120618
  Receipt Date: 20120611
  Transmission Date: 20120825
  Serious: Yes (Hospitalization)
  Sender: FDA-Public Use
  Company Number: US-ACTELION-A-US2012-67235

PATIENT

DRUGS (3)
  1. METOLAZONE [Concomitant]
  2. LASIX [Concomitant]
  3. VENTAVIS [Suspect]
     Indication: PULMONARY ARTERIAL HYPERTENSION
     Dosage: UNK
     Route: 055
     Dates: start: 20100726

REACTIONS (6)
  - SICKLE CELL ANAEMIA [None]
  - OEDEMA PERIPHERAL [None]
  - TRANSFUSION [None]
  - CARDIAC FAILURE CONGESTIVE [None]
  - ASCITES [None]
  - NO THERAPEUTIC RESPONSE [None]
